FAERS Safety Report 25776085 (Version 1)
Quarter: 2025Q3

REPORT INFORMATION
  Report Type: Spontaneous
  Country: MX (occurrence: MX)
  Receive Date: 20250909
  Receipt Date: 20250909
  Transmission Date: 20251020
  Serious: Yes (Other)
  Sender: CELLTRION
  Company Number: MX-CELLTRION INC.-2025MX031851

PATIENT

DRUGS (1)
  1. RITUXIMAB [Suspect]
     Active Substance: RITUXIMAB
     Indication: Systemic scleroderma
     Route: 042

REACTIONS (2)
  - Colitis ulcerative [Unknown]
  - Intentional product use issue [Unknown]
